FAERS Safety Report 24159911 (Version 2)
Quarter: 2024Q3

REPORT INFORMATION
  Report Type: Report from Study
  Country: US (occurrence: US)
  Receive Date: 20240731
  Receipt Date: 20240803
  Transmission Date: 20241016
  Serious: Yes (Death, Hospitalization)
  Sender: ABBVIE
  Company Number: US-ABBVIE-5860496

PATIENT
  Sex: Female
  Weight: 61 kg

DRUGS (6)
  1. LINZESS [Suspect]
     Active Substance: LINACLOTIDE
     Indication: Irritable bowel syndrome
     Dosage: 72 MICROGRAM
     Route: 048
     Dates: start: 202406
  2. VITAMIN B [Concomitant]
     Active Substance: VITAMIN B
     Indication: Renal disorder
     Dates: start: 202406
  3. KLONOPIN [Concomitant]
     Active Substance: CLONAZEPAM
     Indication: Anxiety
  4. LASIX [Concomitant]
     Active Substance: FUROSEMIDE
     Indication: Peripheral swelling
  5. DETROL [Concomitant]
     Active Substance: TOLTERODINE TARTRATE
     Indication: Urinary incontinence
  6. ARICEPT [Concomitant]
     Active Substance: DONEPEZIL HYDROCHLORIDE
     Indication: Memory impairment

REACTIONS (9)
  - Colitis ischaemic [Fatal]
  - Inflammation [Unknown]
  - Dehydration [Unknown]
  - Peripheral swelling [Recovered/Resolved]
  - Intestinal obstruction [Unknown]
  - Asthenia [Unknown]
  - Diarrhoea [Unknown]
  - Infection [Unknown]
  - Constipation [Fatal]

NARRATIVE: CASE EVENT DATE: 20240101
